FAERS Safety Report 24292333 (Version 1)
Quarter: 2024Q3

REPORT INFORMATION
  Report Type: Spontaneous
  Country: CN (occurrence: CN)
  Receive Date: 20240906
  Receipt Date: 20240906
  Transmission Date: 20241017
  Serious: Yes (Hospitalization, Other)
  Sender: GLAXOSMITHKLINE
  Company Number: CN-GLAXOSMITHKLINE-CN2024APC108082

PATIENT

DRUGS (7)
  1. FLUTICASONE FUROATE\UMECLIDINIUM BROMIDE\VILANTEROL TRIFENATATE [Suspect]
     Active Substance: FLUTICASONE FUROATE\UMECLIDINIUM BROMIDE\VILANTEROL TRIFENATATE
     Indication: Asthma
     Dosage: UNK
     Route: 055
     Dates: start: 20230821, end: 20230821
  2. AZTREONAM [Suspect]
     Active Substance: AZTREONAM
     Indication: Infection
     Dosage: 1 G, TID INTRAVENOUS DRIP
     Dates: start: 20230821, end: 20230821
  3. MEROPENEM [Suspect]
     Active Substance: MEROPENEM
     Indication: Injection
     Dosage: 0.5 G, QID
     Dates: start: 20230821, end: 20230822
  4. DIETARY SUPPLEMENT\PROBIOTICS [Suspect]
     Active Substance: DIETARY SUPPLEMENT\PROBIOTICS NOS
     Indication: Abdominal distension
     Dosage: 2 DF, TID
     Route: 048
     Dates: start: 20230821, end: 20230821
  5. DIETARY SUPPLEMENT\PROBIOTICS [Suspect]
     Active Substance: DIETARY SUPPLEMENT\PROBIOTICS NOS
     Indication: Dyspepsia
  6. HERBALS [Suspect]
     Active Substance: HERBALS
     Indication: Cough
     Dosage: 1 DF, BID
     Route: 048
     Dates: start: 20230821, end: 20230822
  7. VITAMIN B2 [Suspect]
     Active Substance: RIBOFLAVIN
     Indication: Vitamin B2 deficiency
     Dosage: 5 MG
     Route: 048
     Dates: start: 20230821, end: 20230821

REACTIONS (9)
  - Rash [Recovering/Resolving]
  - Hypereosinophilic syndrome [Recovering/Resolving]
  - Eosinophilic granulomatosis with polyangiitis [Recovering/Resolving]
  - Pyrexia [Recovering/Resolving]
  - Skin hyperpigmentation [Recovering/Resolving]
  - Rash pruritic [Recovering/Resolving]
  - C-reactive protein increased [Recovering/Resolving]
  - Hyperplasia [Recovering/Resolving]
  - Immune system disorder [Recovering/Resolving]

NARRATIVE: CASE EVENT DATE: 20230821
